FAERS Safety Report 4677847-X (Version None)
Quarter: 2005Q2

REPORT INFORMATION
  Report Type: 
  Country: None (occurrence: None)
  Receive Date: 20050527
  Receipt Date: 20050520
  Transmission Date: 20051028
  Serious: Yes (Other)
  Sender: FDA-Public Use
  Company Number: 213343

PATIENT
  Sex: Male

DRUGS (1)
  1. RAPTIVA [Suspect]
     Indication: PSORIASIS
     Dosage: SUBCUTANEOUS
     Route: 058
     Dates: start: 20050316

REACTIONS (4)
  - ANGIONEUROTIC OEDEMA [None]
  - BLISTER [None]
  - HYPERTENSION [None]
  - PHARYNGEAL OEDEMA [None]
